FAERS Safety Report 11803761 (Version 2)
Quarter: 2016Q1

REPORT INFORMATION
  Report Type: Spontaneous
  Country: US (occurrence: US)
  Receive Date: 20151204
  Receipt Date: 20160201
  Transmission Date: 20160525
  Serious: No
  Sender: FDA-Public Use
  Company Number: GXBR2015US002630

PATIENT
  Sex: Female
  Weight: 81.63 kg

DRUGS (1)
  1. ZOLPIDEM TARTRATE. [Suspect]
     Active Substance: ZOLPIDEM TARTRATE
     Indication: INSOMNIA
     Dosage: 12.5 MG, QHS
     Route: 048

REACTIONS (1)
  - Initial insomnia [Not Recovered/Not Resolved]
